FAERS Safety Report 16068476 (Version 1)
Quarter: 2019Q1

REPORT INFORMATION
  Report Type: Report from Study
  Country: CA (occurrence: CA)
  Receive Date: 20190313
  Receipt Date: 20190313
  Transmission Date: 20190418
  Serious: Yes (Hospitalization, Other)
  Sender: FDA-Public Use
  Company Number: CA-GLAXOSMITHKLINE-CA2019GSK001800

PATIENT
  Sex: Female

DRUGS (2)
  1. VENTOLIN [Suspect]
     Active Substance: ALBUTEROL SULFATE
     Indication: PRODUCT USED FOR UNKNOWN INDICATION
     Dosage: UNK
  2. MEPOLIZUMAB [Suspect]
     Active Substance: MEPOLIZUMAB
     Indication: ASTHMA
     Dosage: 100 MG, Z(MONTHLY)
     Route: 042
     Dates: start: 20180913

REACTIONS (8)
  - Respiratory tract congestion [Unknown]
  - Fatigue [Unknown]
  - Cough [Unknown]
  - Hepatic pain [Recovered/Resolved]
  - Pneumonia [Unknown]
  - Breast pain [Recovered/Resolved]
  - Pain in extremity [Recovered/Resolved]
  - Abdominal pain [Recovered/Resolved]
